FAERS Safety Report 8187433-5 (Version None)
Quarter: 2012Q1

REPORT INFORMATION
  Report Type: 
  Country: None (occurrence: None)
  Receive Date: 20120306
  Receipt Date: 20120302
  Transmission Date: 20120608
  Serious: Yes (Life-Threatening, Hospitalization, Other)
  Sender: FDA-Public Use
  Company Number: JP-SANOFI-AVENTIS-2011SA075294

PATIENT
  Age: 65 Year
  Sex: Male
  Weight: 79 kg

DRUGS (26)
  1. OXALIPLATIN [Suspect]
     Route: 041
     Dates: start: 20110929
  2. FLUOROURACIL [Concomitant]
     Route: 041
     Dates: start: 20110512, end: 20110929
  3. LOCHOLEST [Concomitant]
     Route: 048
  4. OXALIPLATIN [Suspect]
     Indication: COLON CANCER
     Route: 041
     Dates: start: 20110127
  5. OXALIPLATIN [Suspect]
     Route: 041
     Dates: start: 20110331
  6. FLUOROURACIL [Concomitant]
     Indication: COLON CANCER
     Route: 040
     Dates: start: 20110512, end: 20110929
  7. EMEND [Concomitant]
     Indication: PROPHYLAXIS
     Route: 048
     Dates: start: 20110127, end: 20111001
  8. JANUVIA [Concomitant]
     Indication: DIABETES MELLITUS
     Route: 048
     Dates: start: 20101217
  9. ASPIRIN [Concomitant]
     Indication: CEREBRAL INFARCTION
     Route: 048
  10. LYRICA [Concomitant]
     Indication: PROPHYLAXIS
     Route: 048
     Dates: start: 20110127
  11. AMLODIPINE [Concomitant]
     Indication: HYPERTENSION
     Route: 048
  12. OXALIPLATIN [Suspect]
     Route: 041
     Dates: start: 20110217
  13. OXALIPLATIN [Suspect]
     Route: 041
     Dates: start: 20110512
  14. ALOXI [Concomitant]
     Indication: PREMEDICATION
     Route: 041
     Dates: start: 20110127, end: 20110929
  15. PIOGLITAZONE [Concomitant]
     Indication: DIABETES MELLITUS
     Route: 048
     Dates: start: 20100903
  16. VALSARTAN AND HYDROCHLOROTHIAZIDE [Concomitant]
     Indication: HYPERTENSION
     Route: 048
     Dates: start: 20110903
  17. BASEN [Concomitant]
     Indication: DIABETES MELLITUS
     Route: 048
     Dates: start: 20101219
  18. LEVOLEUCOVORIN CALCIUM [Concomitant]
     Indication: COLON CANCER
     Route: 041
     Dates: start: 20110512, end: 20110929
  19. AVASTIN [Concomitant]
     Indication: COLON CANCER
     Route: 041
     Dates: start: 20110331, end: 20110929
  20. XELODA [Concomitant]
     Indication: COLON CANCER
     Route: 048
     Dates: start: 20110127, end: 20110413
  21. SODIUM PICOSULFATE [Concomitant]
     Indication: CONSTIPATION
     Route: 048
     Dates: start: 20110127
  22. OXALIPLATIN [Suspect]
     Route: 041
     Dates: start: 20110310
  23. OXALIPLATIN [Suspect]
     Route: 041
     Dates: start: 20110915
  24. DEXAMETHASONE SODIUM PHOSPHATE [Concomitant]
     Indication: PREMEDICATION
     Route: 041
     Dates: start: 20110127, end: 20110929
  25. TICLOPIDINE HYDROCHLORIDE [Concomitant]
     Indication: CEREBRAL INFARCTION
     Route: 048
  26. GLUTAMEAL [Concomitant]
     Indication: DIABETES MELLITUS
     Route: 048

REACTIONS (7)
  - PLATELET COUNT DECREASED [None]
  - HAEMOLYTIC URAEMIC SYNDROME [None]
  - ASCITES [None]
  - DISSEMINATED INTRAVASCULAR COAGULATION [None]
  - MALIGNANT PLEURAL EFFUSION [None]
  - DEPRESSED LEVEL OF CONSCIOUSNESS [None]
  - HAEMODIALYSIS [None]
